FAERS Safety Report 5726744-7 (Version None)
Quarter: 2008Q2

REPORT INFORMATION
  Report Type: 
  Country: None (occurrence: None)
  Receive Date: 20080502
  Receipt Date: 20080428
  Transmission Date: 20081010
  Serious: Yes (Hospitalization, Congenital Anomaly)
  Sender: FDA-Public Use
  Company Number: GB-ABBOTT-07P-167-0374246-00

PATIENT
  Sex: Female

DRUGS (1)
  1. VALPROATE SODIUM [Suspect]
     Indication: DRUG EXPOSURE DURING PREGNANCY
     Route: 064

REACTIONS (45)
  - ABDOMINAL DISTENSION [None]
  - ABNORMAL BEHAVIOUR [None]
  - APNOEA [None]
  - ARTHRALGIA [None]
  - ATRIAL SEPTAL DEFECT [None]
  - BODY DYSMORPHIC DISORDER [None]
  - BRONCHIOLITIS [None]
  - CONGENITAL FLAT FEET [None]
  - CONGENITAL FOOT MALFORMATION [None]
  - CONGENITAL HYPERTRICHOSIS [None]
  - CONGENITAL NAIL DISORDER [None]
  - CONGENITAL ORAL MALFORMATION [None]
  - CONSTIPATION [None]
  - CONVULSION [None]
  - CROUP INFECTIOUS [None]
  - CYANOSIS [None]
  - DEVELOPMENTAL COORDINATION DISORDER [None]
  - DEVELOPMENTAL DELAY [None]
  - DRUG EXPOSURE DURING PREGNANCY [None]
  - DYSMORPHISM [None]
  - ENURESIS [None]
  - ERYTHEMA [None]
  - FEEDING DISORDER NEONATAL [None]
  - FOETAL ANTICONVULSANT SYNDROME [None]
  - GASTROINTESTINAL DISORDER [None]
  - HIGH ARCHED PALATE [None]
  - HYPERTELORISM OF ORBIT [None]
  - HYPERTONIA [None]
  - HYPONATRAEMIA [None]
  - HYPOTONIA NEONATAL [None]
  - JAUNDICE NEONATAL [None]
  - JOINT HYPEREXTENSION [None]
  - LEARNING DISORDER [None]
  - MASKED FACIES [None]
  - MYOPIA [None]
  - PAIN IN EXTREMITY [None]
  - PATENT DUCTUS ARTERIOSUS [None]
  - PNEUMONIA [None]
  - POOR WEIGHT GAIN NEONATAL [None]
  - PROGNATHISM [None]
  - SKIN DISORDER [None]
  - SMALL FOR DATES BABY [None]
  - SPEECH DISORDER DEVELOPMENTAL [None]
  - STRABISMUS [None]
  - TACHYPNOEA [None]
